FAERS Safety Report 10457626 (Version 1)
Quarter: 2014Q3

REPORT INFORMATION
  Report Type: Spontaneous
  Country: US (occurrence: None)
  Receive Date: 20140912
  Receipt Date: 20140912
  Transmission Date: 20150326
  Serious: Yes (Hospitalization)
  Sender: FDA-Public Use
  Company Number: 2007S1003172

PATIENT
  Age: 79 Year
  Sex: Female
  Weight: 91 kg

DRUGS (11)
  1. ACTOS [Concomitant]
     Active Substance: PIOGLITAZONE HYDROCHLORIDE
  2. METOPROLOL [Concomitant]
     Active Substance: METOPROLOL
  3. ASPIRIN (ACETYLSALICYLIC ACID) [Concomitant]
     Active Substance: ASPIRIN
  4. CARDIZEM (DILTIAZEM) [Concomitant]
  5. KAY CIEL (POTASSIUM CHLORIDE) [Concomitant]
  6. PRINIVIL (LISINOPRIL DIHYDRATE) [Concomitant]
  7. NEXIUM [Concomitant]
     Active Substance: ESOMEPRAZOLE MAGNESIUM
  8. PHOSPHO-SODA [Suspect]
     Active Substance: SODIUM PHOSPHATE, DIBASIC\SODIUM PHOSPHATE, MONOBASIC
     Indication: COLONOSCOPY
     Route: 048
     Dates: start: 20060125, end: 20060126
  9. LASIX [Concomitant]
     Active Substance: FUROSEMIDE
  10. ZOCOR [Concomitant]
     Active Substance: SIMVASTATIN
  11. ISODRIL (PHENYLEPHRINE HYDROCHLORIDE, CHLORHEXIDINE GLUCONATE) [Concomitant]

REACTIONS (19)
  - Decreased appetite [None]
  - Tubulointerstitial nephritis [None]
  - Anaemia [None]
  - Renal failure acute [None]
  - Oesophageal discomfort [None]
  - Nausea [None]
  - Abdominal pain upper [None]
  - Renal cyst [None]
  - Renal tubular necrosis [None]
  - Hyperkalaemia [None]
  - Abdominal pain [None]
  - Blood pressure increased [None]
  - Renal failure chronic [None]
  - Dyspnoea [None]
  - Kidney fibrosis [None]
  - Fatigue [None]
  - Nephrocalcinosis [None]
  - Renal arteriosclerosis [None]
  - Hyperparathyroidism [None]

NARRATIVE: CASE EVENT DATE: 20060322
